FAERS Safety Report 5386452-1 (Version None)
Quarter: 2007Q3

REPORT INFORMATION
  Report Type: 
  Country: None (occurrence: None)
  Receive Date: 20070713
  Receipt Date: 20070708
  Transmission Date: 20080115
  Serious: Yes (Other)
  Sender: FDA-Public Use
  Company Number: DE-JNJFOC-20070701432

PATIENT

DRUGS (1)
  1. CONCERTA [Suspect]
     Indication: DRUG ABUSER
     Route: 048

REACTIONS (2)
  - DRUG ABUSER [None]
  - SLEEP DISORDER [None]
